FAERS Safety Report 18129582 (Version 1)
Quarter: 2020Q3

REPORT INFORMATION
  Report Type: Spontaneous
  Country: US (occurrence: US)
  Receive Date: 20200810
  Receipt Date: 20200810
  Transmission Date: 20201103
  Serious: No
  Sender: FDA-Public Use
  Company Number: US-PERRIGO-19US008154

PATIENT
  Age: 84 Year
  Sex: Female
  Weight: 52.15 kg

DRUGS (4)
  1. DULOXETINE. [Concomitant]
     Active Substance: DULOXETINE
     Indication: INSOMNIA
     Dosage: UNK
     Route: 065
  2. LEVOTHYROXINE. [Concomitant]
     Active Substance: LEVOTHYROXINE
     Indication: HYPOTHYROIDISM
     Dosage: UNK
     Route: 065
  3. LORATADINE. [Suspect]
     Active Substance: LORATADINE
     Indication: HYPERSENSITIVITY
     Dosage: 10 MG, QD
     Route: 048
     Dates: start: 20190701
  4. OLANZAPINE. [Concomitant]
     Active Substance: OLANZAPINE
     Indication: INSOMNIA
     Dosage: UNK
     Route: 065

REACTIONS (1)
  - Drug ineffective [Unknown]

NARRATIVE: CASE EVENT DATE: 20190701
